FAERS Safety Report 10865762 (Version 1)
Quarter: 2015Q1

REPORT INFORMATION
  Report Type: Spontaneous
  Country: US (occurrence: US)
  Receive Date: 20150224
  Receipt Date: 20150224
  Transmission Date: 20150721
  Serious: No
  Sender: FDA-Public Use
  Company Number: US-GLAXOSMITHKLINE-US2015GSK023418

PATIENT
  Sex: Female

DRUGS (4)
  1. NETI POT (SALINE) [Suspect]
     Active Substance: SODIUM CHLORIDE
     Indication: PRODUCT USED FOR UNKNOWN INDICATION
  2. VICKS INHALER [Suspect]
     Active Substance: CAMPHOR\MENTHOL\METHYL SALICYLATE\PINE NEEDLE OIL (PINUS MUGO)
     Indication: PRODUCT USED FOR UNKNOWN INDICATION
  3. FLONASE [Suspect]
     Active Substance: FLUTICASONE PROPIONATE
     Indication: MULTIPLE ALLERGIES
  4. ALLERGAN [Suspect]
     Active Substance: PAPAIN
     Indication: PRODUCT USED FOR UNKNOWN INDICATION
     Dosage: 2 TABLETS
     Route: 048

REACTIONS (6)
  - Lacrimation increased [Unknown]
  - Nasal congestion [Unknown]
  - Throat irritation [Unknown]
  - Insomnia [Unknown]
  - Dyspnoea [Unknown]
  - Eye pruritus [Unknown]
